FAERS Safety Report 4454822-1 (Version None)
Quarter: 2004Q3

REPORT INFORMATION
  Report Type: 
  Country: None (occurrence: None)
  Receive Date: 20040826
  Receipt Date: 20040503
  Transmission Date: 20050211
  Serious: Yes (Life-Threatening, Hospitalization, Other)
  Sender: FDA-Public Use
  Company Number: WAES 0402USA01800

PATIENT
  Age: 80 Year
  Sex: Male
  Weight: 86.637 kg

DRUGS (10)
  1. ZETIA [Suspect]
     Indication: BLOOD CHOLESTEROL INCREASED
     Dosage: 10 MG/DAILY/PO;  10 MG/QOD/PO
     Route: 048
     Dates: start: 20030312, end: 20030324
  2. ZETIA [Suspect]
     Indication: HYPERLIPIDAEMIA
     Dosage: 10 MG/DAILY/PO;  10 MG/QOD/PO
     Route: 048
     Dates: start: 20030312, end: 20030324
  3. ZETIA [Suspect]
     Indication: BLOOD CHOLESTEROL INCREASED
     Dosage: 10 MG/DAILY/PO;  10 MG/QOD/PO
     Route: 048
     Dates: start: 20030101, end: 20031101
  4. ZETIA [Suspect]
     Indication: HYPERLIPIDAEMIA
     Dosage: 10 MG/DAILY/PO;  10 MG/QOD/PO
     Route: 048
     Dates: start: 20030101, end: 20031101
  5. COUMADIN [Concomitant]
  6. LASIX [Concomitant]
  7. MONOPRIL [Concomitant]
  8. SYNTHROID [Concomitant]
  9. ZOCOR [Concomitant]
  10. AMIODARONE HYDROCHLORIDE [Concomitant]

REACTIONS (1)
  - DIARRHOEA [None]
